FAERS Safety Report 12936283 (Version 3)
Quarter: 2016Q4

REPORT INFORMATION
  Report Type: Spontaneous
  Country: JP (occurrence: JP)
  Receive Date: 20161114
  Receipt Date: 20161216
  Transmission Date: 20170207
  Serious: Yes (Other)
  Sender: FDA-Public Use
  Company Number: JP-ASTELLAS-2016JP016766AA

PATIENT
  Age: 52 Year
  Sex: Male

DRUGS (19)
  1. GRACEPTOR [Suspect]
     Active Substance: TACROLIMUS
     Indication: IMMUNOSUPPRESSANT DRUG THERAPY
     Route: 048
     Dates: start: 20141219, end: 20141222
  2. SULFAMETHOXAZOLE AND TRIMETHOPRIM [Concomitant]
     Active Substance: SULFAMETHOXAZOLE\TRIMETHOPRIM
     Route: 048
     Dates: start: 20150409, end: 20150629
  3. GRACEPTOR [Suspect]
     Active Substance: TACROLIMUS
     Route: 048
     Dates: start: 20150501, end: 20150812
  4. GRACEPTOR [Suspect]
     Active Substance: TACROLIMUS
     Route: 048
     Dates: start: 20160128
  5. CELLCEPT [Suspect]
     Active Substance: MYCOPHENOLATE MOFETIL\MYCOPHENOLATE MOFETIL HYDROCHLORIDE
     Indication: RENAL TRANSPLANT
     Route: 065
     Dates: start: 20150217, end: 20150306
  6. MEDROL [Suspect]
     Active Substance: METHYLPREDNISOLONE
     Route: 048
     Dates: start: 20141225, end: 20150610
  7. MEDROL [Suspect]
     Active Substance: METHYLPREDNISOLONE
     Route: 048
     Dates: start: 20150611
  8. MEDROL [Suspect]
     Active Substance: METHYLPREDNISOLONE
     Indication: RENAL TRANSPLANT
     Route: 048
     Dates: start: 20141222, end: 20141224
  9. FERROUS SULFATE. [Concomitant]
     Active Substance: FERROUS SULFATE
     Indication: ANAEMIA
     Route: 048
     Dates: start: 20141227, end: 20150409
  10. SULFAMETHOXAZOLE AND TRIMETHOPRIM [Concomitant]
     Active Substance: SULFAMETHOXAZOLE\TRIMETHOPRIM
     Indication: RENAL TRANSPLANT
     Dosage: 0.5 DF, ONCE DAILY
     Route: 048
     Dates: start: 20150116, end: 20150408
  11. GRACEPTOR [Suspect]
     Active Substance: TACROLIMUS
     Route: 048
     Dates: start: 20150813, end: 20160127
  12. GRACEPTOR [Suspect]
     Active Substance: TACROLIMUS
     Indication: RENAL TRANSPLANT
     Route: 048
     Dates: start: 20141223, end: 20141226
  13. MEDROL [Suspect]
     Active Substance: METHYLPREDNISOLONE
     Indication: IMMUNOSUPPRESSANT DRUG THERAPY
     Route: 048
     Dates: start: 20141220, end: 20141221
  14. SIMULECT [Concomitant]
     Active Substance: BASILIXIMAB
     Indication: RENAL TRANSPLANT
     Route: 041
     Dates: start: 20141218, end: 20141218
  15. GRACEPTOR [Suspect]
     Active Substance: TACROLIMUS
     Route: 048
     Dates: start: 20141227, end: 20150430
  16. CELLCEPT [Suspect]
     Active Substance: MYCOPHENOLATE MOFETIL\MYCOPHENOLATE MOFETIL HYDROCHLORIDE
     Indication: IMMUNOSUPPRESSANT DRUG THERAPY
     Route: 048
     Dates: start: 20141219, end: 20150216
  17. CELLCEPT [Suspect]
     Active Substance: MYCOPHENOLATE MOFETIL\MYCOPHENOLATE MOFETIL HYDROCHLORIDE
     Route: 048
     Dates: start: 20150307, end: 20160804
  18. SIMULECT [Concomitant]
     Active Substance: BASILIXIMAB
     Route: 041
     Dates: start: 20141222, end: 20141222
  19. ASPIRIN. [Concomitant]
     Active Substance: ASPIRIN
     Indication: ANTICOAGULANT THERAPY
     Route: 048
     Dates: end: 20150212

REACTIONS (1)
  - Cytomegalovirus test positive [Recovered/Resolved]

NARRATIVE: CASE EVENT DATE: 20150212
